FAERS Safety Report 12161655 (Version 2)
Quarter: 2016Q2

REPORT INFORMATION
  Report Type: Spontaneous
  Country: US (occurrence: US)
  Receive Date: 20160309
  Receipt Date: 20160411
  Transmission Date: 20160815
  Serious: Yes (Hospitalization, Other)
  Sender: FDA-Public Use
  Company Number: US-009507513-1603USA002835

PATIENT
  Sex: Female

DRUGS (10)
  1. ZOCOR [Suspect]
     Active Substance: SIMVASTATIN
     Route: 048
  2. ELIQUIS [Suspect]
     Active Substance: APIXABAN
  3. METOPROLOL TARTRATE. [Suspect]
     Active Substance: METOPROLOL TARTRATE
  4. BROMOCRIPTINE [Suspect]
     Active Substance: BROMOCRIPTINE
  5. ZIPRASIDONE. [Concomitant]
     Active Substance: ZIPRASIDONE
  6. ASPIRIN. [Suspect]
     Active Substance: ASPIRIN
  7. ACTOPLUS MET [Suspect]
     Active Substance: METFORMIN HYDROCHLORIDE\PIOGLITAZONE HYDROCHLORIDE
  8. ONGLYZA [Suspect]
     Active Substance: SAXAGLIPTIN HYDROCHLORIDE
  9. ENALAPRIL MALEATE. [Suspect]
     Active Substance: ENALAPRIL MALEATE
     Route: 048
  10. LORAZEPAM. [Concomitant]
     Active Substance: LORAZEPAM
     Indication: ANXIETY
     Dosage: 1 MG, TWICE DAILY AS NEEDED
     Route: 048

REACTIONS (5)
  - Atrial fibrillation [Unknown]
  - Inflammation [Unknown]
  - Peripheral swelling [Unknown]
  - Weight decreased [Unknown]
  - Pneumonia [Unknown]
